FAERS Safety Report 17548440 (Version 2)
Quarter: 2020Q2

REPORT INFORMATION
  Report Type: Spontaneous
  Country: SE (occurrence: SE)
  Receive Date: 20200317
  Receipt Date: 20200604
  Transmission Date: 20200713
  Serious: Yes (Life-Threatening, Hospitalization, Other)
  Sender: FDA-Public Use
  Company Number: NVSC2020SE073626

PATIENT
  Age: 77 Year
  Sex: Female

DRUGS (2)
  1. GLUCOSE [Concomitant]
     Active Substance: DEXTROSE
     Indication: DIABETES MELLITUS MANAGEMENT
     Dosage: UNK
     Route: 041
  2. AMLODIPINE [Suspect]
     Active Substance: AMLODIPINE BESYLATE
     Indication: INTENTIONAL OVERDOSE
     Dosage: 250 MG
     Route: 048

REACTIONS (7)
  - Non-cardiogenic pulmonary oedema [Recovered/Resolved]
  - Intentional overdose [Unknown]
  - Toxicity to various agents [Recovered/Resolved]
  - Respiratory failure [Recovered/Resolved]
  - Cardiac dysfunction [Recovered/Resolved]
  - Bradycardia [Unknown]
  - Hypotension [Unknown]
